FAERS Safety Report 24405007 (Version 1)
Quarter: 2024Q4

REPORT INFORMATION
  Report Type: Spontaneous
  Country: US (occurrence: None)
  Receive Date: 20241005
  Receipt Date: 20241005
  Transmission Date: 20250115
  Serious: Yes (Death)
  Sender: Public
  Company Number: None

PATIENT
  Age: 73 Year
  Sex: Female
  Weight: 68 kg

DRUGS (1)
  1. TAXOL [Suspect]
     Active Substance: PACLITAXEL

REACTIONS (9)
  - Transitional cell carcinoma [None]
  - Malignant neoplasm progression [None]
  - Ureteric obstruction [None]
  - Biliary dilatation [None]
  - Renal impairment [None]
  - Hydronephrosis [None]
  - Bile duct stenosis [None]
  - Urine output decreased [None]
  - Functional gastrointestinal disorder [None]

NARRATIVE: CASE EVENT DATE: 20230823
